FAERS Safety Report 6177461-3 (Version None)
Quarter: 2009Q2

REPORT INFORMATION
  Report Type: 
  Country: None (occurrence: None)
  Receive Date: 20090501
  Receipt Date: 20090501
  Transmission Date: 20091009
  Serious: Yes (Hospitalization)
  Sender: FDA-Public Use
  Company Number: None

PATIENT
  Age: 23 Year
  Sex: Female
  Weight: 63.5 kg

DRUGS (1)
  1. CEFEPIME [Suspect]
     Indication: BACTERAEMIA
     Dosage: 400MG PO BID
     Route: 048
     Dates: start: 20090204, end: 20090205

REACTIONS (3)
  - DYSPNOEA [None]
  - LIP SWELLING [None]
  - URTICARIA [None]
